FAERS Safety Report 26040350 (Version 2)
Quarter: 2025Q4

REPORT INFORMATION
  Report Type: Report from Study
  Country: US (occurrence: US)
  Receive Date: 20251113
  Receipt Date: 20251119
  Transmission Date: 20260118
  Serious: Yes (Other)
  Sender: ABBVIE
  Company Number: US-ABBVIE-6450749

PATIENT
  Age: 79 Year
  Sex: Male
  Weight: 86.18 kg

DRUGS (6)
  1. RINVOQ [Suspect]
     Active Substance: UPADACITINIB
     Indication: Rheumatoid arthritis
     Dosage: FORM STRENGTH: 15 MILLIGRAM
     Route: 048
     Dates: start: 20250616
  2. METHOTREXATE [Concomitant]
     Active Substance: METHOTREXATE
     Indication: Rheumatoid arthritis
  3. INSULIN NOS [Suspect]
     Active Substance: INSULIN NOS
     Indication: Blood glucose
     Dosage: FREQUENCY: UNKNOWN?START DATE: UNKNOWN
     Route: 065
  4. PIOGLITAZONE [Suspect]
     Active Substance: PIOGLITAZONE
     Indication: Blood glucose
     Dosage: FREQUENCY: UNKNOWN?START DATE: UNKNOWN
     Route: 065
  5. GLIPIZIDE [Suspect]
     Active Substance: GLIPIZIDE
     Indication: Blood glucose
     Dosage: FREQUENCY: UNKNOWN?START DATE: UNKNOWN
     Route: 065
  6. FOLIC ACID [Concomitant]
     Active Substance: FOLIC ACID
     Indication: Product used for unknown indication

REACTIONS (8)
  - Ligament disorder [Recovering/Resolving]
  - Blood glucose increased [Recovering/Resolving]
  - Spinal stenosis [Unknown]
  - Pain in extremity [Recovering/Resolving]
  - Back pain [Recovering/Resolving]
  - Gait disturbance [Unknown]
  - Nerve compression [Recovering/Resolving]
  - Arthritis [Unknown]

NARRATIVE: CASE EVENT DATE: 20250101
